FAERS Safety Report 15623248 (Version 3)
Quarter: 2019Q1

REPORT INFORMATION
  Report Type: Spontaneous
  Country: US (occurrence: US)
  Receive Date: 20181115
  Receipt Date: 20190206
  Transmission Date: 20190417
  Serious: Yes (Hospitalization)
  Sender: FDA-Public Use
  Company Number: US-ELI_LILLY_AND_COMPANY-US201810003103

PATIENT
  Age: 16 Year
  Sex: Female

DRUGS (6)
  1. ORENITRAM [Suspect]
     Active Substance: TREPROSTINIL
     Dosage: 5 MG, DAILY
     Route: 065
     Dates: start: 20180802
  2. ORENITRAM [Suspect]
     Active Substance: TREPROSTINIL
     Indication: PULMONARY HYPERTENSION
     Dosage: 5 MG, TID
     Route: 065
     Dates: start: 20180802
  3. ORENITRAM [Suspect]
     Active Substance: TREPROSTINIL
     Dosage: 3.75 MG, TID
     Route: 065
  4. ADCIRCA [Suspect]
     Active Substance: TADALAFIL
     Indication: PULMONARY HYPERTENSION
     Dosage: 40 MG, BID
     Route: 065
     Dates: start: 20140403
  5. ORENITRAM [Suspect]
     Active Substance: TREPROSTINIL
     Dosage: 4.5 MG, DAILY
     Route: 065
     Dates: start: 20180802
  6. AMBRISENTAN [Suspect]
     Active Substance: AMBRISENTAN
     Indication: PULMONARY HYPERTENSION
     Dosage: 5 MG, DAILY
     Route: 065
     Dates: start: 20170615

REACTIONS (7)
  - Vomiting [Unknown]
  - Nausea [Not Recovered/Not Resolved]
  - Flushing [Not Recovered/Not Resolved]
  - Abdominal pain upper [Not Recovered/Not Resolved]
  - Off label use [Not Recovered/Not Resolved]
  - Pulmonary hypertension [Unknown]
  - Headache [Not Recovered/Not Resolved]

NARRATIVE: CASE EVENT DATE: 20170615
